FAERS Safety Report 9401473 (Version 1)
Quarter: 2013Q3

REPORT INFORMATION
  Report Type: Report from Study
  Country: US (occurrence: US)
  Receive Date: 20130716
  Receipt Date: 20130716
  Transmission Date: 20140515
  Serious: Yes (Hospitalization)
  Sender: FDA-Public Use
  Company Number: US-ROCHE-1244647

PATIENT
  Age: 55 Year
  Sex: Female

DRUGS (6)
  1. MYCOPHENOLATE MOFETIL [Suspect]
     Indication: RENAL TRANSPLANT
     Route: 065
     Dates: start: 20130311
  2. BELATACEPT [Suspect]
     Indication: RENAL TRANSPLANT
     Route: 042
     Dates: start: 20130311
  3. BELATACEPT [Suspect]
     Route: 042
     Dates: start: 20130325
  4. BELATACEPT [Suspect]
     Dosage: MOST RECENT DOSE PRIOR TO SAE: 06/MAY/2013.
     Route: 042
     Dates: start: 20130408
  5. ALEMTUZUMAB [Concomitant]
     Route: 065
     Dates: start: 20130310
  6. PREDNISOLONE [Concomitant]
     Route: 065
     Dates: start: 20130311, end: 20130404

REACTIONS (4)
  - Haemoglobin decreased [Unknown]
  - Renal tubular necrosis [Unknown]
  - Abscess [Unknown]
  - Deep vein thrombosis [Unknown]
